FAERS Safety Report 18337377 (Version 2)
Quarter: 2020Q4

REPORT INFORMATION
  Report Type: Spontaneous
  Country: RU (occurrence: RU)
  Receive Date: 20201002
  Receipt Date: 20201027
  Transmission Date: 20210113
  Serious: Yes (Other)
  Sender: FDA-Public Use
  Company Number: RU-ROCHE-2686299

PATIENT
  Age: 45 Year
  Sex: Female

DRUGS (5)
  1. TRASTUZUMAB. [Suspect]
     Active Substance: TRASTUZUMAB
     Indication: BREAST CANCER
     Route: 065
     Dates: start: 20180314
  2. CAPECITABINE. [Suspect]
     Active Substance: CAPECITABINE
     Indication: BREAST CANCER
     Route: 048
     Dates: start: 20190905
  3. LAPATINIB [Concomitant]
     Active Substance: LAPATINIB
     Dates: start: 20190905
  4. TOREMIFENE [Concomitant]
     Active Substance: TOREMIFENE
  5. TAMOXIFEN [Concomitant]
     Active Substance: TAMOXIFEN

REACTIONS (2)
  - Muscular weakness [Unknown]
  - Epilepsy [Unknown]

NARRATIVE: CASE EVENT DATE: 201811
